FAERS Safety Report 18535712 (Version 1)
Quarter: 2020Q4

REPORT INFORMATION
  Report Type: Report from Study
  Country: US (occurrence: US)
  Receive Date: 20201123
  Receipt Date: 20201123
  Transmission Date: 20210114
  Serious: Yes (Hospitalization, Other)
  Sender: FDA-Public Use
  Company Number: US-JNJFOC-20201039752

PATIENT
  Age: 57 Year
  Sex: Female
  Weight: 90.35 kg

DRUGS (3)
  1. EPOPROSTENOL SODIUM. [Suspect]
     Active Substance: EPOPROSTENOL SODIUM
     Indication: PULMONARY ARTERIAL HYPERTENSION
     Route: 042
  2. MACITENTAN [Suspect]
     Active Substance: MACITENTAN
     Indication: PULMONARY ARTERIAL HYPERTENSION
     Route: 048
  3. XARELTO [Concomitant]
     Active Substance: RIVAROXABAN

REACTIONS (9)
  - Diverticulitis [Unknown]
  - Atrial fibrillation [Unknown]
  - Fluid overload [Unknown]
  - Procedural complication [Unknown]
  - Pulmonary thrombosis [Unknown]
  - Hip arthroplasty [Unknown]
  - Clostridium difficile infection [Unknown]
  - Dyspnoea [Unknown]
  - Staphylococcal infection [Recovered/Resolved]

NARRATIVE: CASE EVENT DATE: 202010
